FAERS Safety Report 9657833 (Version 2)
Quarter: 2013Q4

REPORT INFORMATION
  Report Type: Spontaneous
  Country: US (occurrence: US)
  Receive Date: 20131030
  Receipt Date: 20131030
  Transmission Date: 20140711
  Serious: Yes (Hospitalization)
  Sender: FDA-Public Use
  Company Number: US-B.I. PHARMACEUTICALS,INC./RIDGEFIELD-2013-BI-13309BP

PATIENT
  Age: 52 Year
  Sex: Female
  Weight: 136.08 kg

DRUGS (15)
  1. PRADAXA [Suspect]
     Indication: ANTICOAGULANT THERAPY
     Dosage: 300 MG
     Dates: start: 20110531, end: 20110710
  2. SOTALOL [Concomitant]
     Indication: ATRIAL FIBRILLATION
     Dosage: 240 MG
     Route: 048
  3. VERAPAMIL [Concomitant]
     Dosage: 120 MG
     Route: 048
  4. LISINOPRIL [Concomitant]
     Dosage: 5 MG
     Route: 048
  5. LEVOTHYROXINE [Concomitant]
     Dosage: 50 MCG
     Route: 048
  6. PRAVACHOL [Concomitant]
     Route: 048
  7. METFORMIN [Concomitant]
     Indication: POLYCYSTIC OVARIES
     Dosage: 1000 MG
  8. ATIVAN [Concomitant]
     Route: 048
  9. VITAMIN D [Concomitant]
  10. GARLIC [Concomitant]
     Dosage: 1000 MG
  11. ESTRA C [Concomitant]
  12. ADVAIR [Concomitant]
     Indication: ASTHMA
  13. ASA [Concomitant]
     Dosage: 81 MG
     Route: 048
  14. MAGNESIUM GLUCONATE [Concomitant]
     Route: 048
  15. MULTIVITAMIN [Concomitant]
     Route: 048

REACTIONS (1)
  - Pericardial haemorrhage [Unknown]
